FAERS Safety Report 18777570 (Version 1)
Quarter: 2021Q1

REPORT INFORMATION
  Report Type: Spontaneous
  Country: US (occurrence: US)
  Receive Date: 20210122
  Receipt Date: 20210122
  Transmission Date: 20210419
  Serious: No
  Sender: FDA-Public Use
  Company Number: US-ROCHE-2585684

PATIENT
  Age: 77 Year
  Sex: Female
  Weight: 82.63 kg

DRUGS (5)
  1. HYDROXYCHLOROQUINE [Concomitant]
     Active Substance: HYDROXYCHLOROQUINE
     Indication: RHEUMATOID ARTHRITIS
     Dosage: TAKES TWICE A DAY ;ONGOING: YES
     Route: 048
  2. RITUXAN [Suspect]
     Active Substance: RITUXIMAB
     Indication: RHEUMATOID ARTHRITIS
     Dosage: TWO?1000 MG DOSES SEPARATED BY 2 WEEKS ;ONGOING: YES
     Route: 041
     Dates: start: 20191001
  3. HCTZ [Concomitant]
     Active Substance: HYDROCHLOROTHIAZIDE
     Indication: CARDIAC VALVE DISEASE
     Route: 048
  4. LOSARTAN. [Concomitant]
     Active Substance: LOSARTAN
     Indication: HYPERTENSION
     Route: 048
  5. PREDNISONE. [Concomitant]
     Active Substance: PREDNISONE
     Indication: RHEUMATOID ARTHRITIS
     Route: 048

REACTIONS (3)
  - Decreased appetite [Unknown]
  - Hair disorder [Not Recovered/Not Resolved]
  - Weight decreased [Unknown]
